FAERS Safety Report 8060608-1 (Version None)
Quarter: 2012Q1

REPORT INFORMATION
  Report Type: 
  Country: None (occurrence: None)
  Receive Date: 20120120
  Receipt Date: 20120117
  Transmission Date: 20120608
  Serious: Yes (Death, Life-Threatening, Hospitalization)
  Sender: FDA-Public Use
  Company Number: DE-B.I. PHARMACEUTICALS,INC./RIDGEFIELD-2012-DE-00155DE

PATIENT
  Sex: Female

DRUGS (14)
  1. ASPIRIN [Concomitant]
  2. METOPROLOL TARTRATE [Concomitant]
     Dosage: 190 MG
  3. RAMIPRIL BETA [Concomitant]
     Dosage: 20 MG
  4. TORSEMIDE [Concomitant]
     Dosage: 50 MG
  5. DIGITOXIN TAB [Concomitant]
     Dosage: 0.07 MG
  6. PANTOPRAZOL RATIOPH [Concomitant]
     Dosage: 40 MG
  7. AMLODIPINE [Concomitant]
     Dosage: 10 MG
  8. PRADAXA [Suspect]
     Indication: ATRIAL FIBRILLATION
     Dosage: 220 MG
     Dates: start: 20111110, end: 20111129
  9. IBU 600 [Concomitant]
  10. SIMVASTATIN [Concomitant]
     Dosage: 20 MG
  11. ISOSORBIDE MONONITRATE [Concomitant]
  12. MOXONIDIN RATIOPH [Concomitant]
     Dosage: 0.4 MG
  13. SPIRO-CT [Concomitant]
     Dosage: 50 MG
  14. LIQUIFILM [Concomitant]
     Route: 031

REACTIONS (4)
  - RENAL FAILURE ACUTE [None]
  - SEPTIC SHOCK [None]
  - MULTI-ORGAN FAILURE [None]
  - GENERAL PHYSICAL HEALTH DETERIORATION [None]
